FAERS Safety Report 4597904-6 (Version None)
Quarter: 2005Q1

REPORT INFORMATION
  Report Type: 
  Country: None (occurrence: None)
  Receive Date: 20050301
  Receipt Date: 20050214
  Transmission Date: 20050727
  Serious: Yes (Hospitalization)
  Sender: FDA-Public Use
  Company Number: 2005000224

PATIENT
  Age: 69 Year
  Sex: Male
  Weight: 86.1834 kg

DRUGS (4)
  1. TARCEVA [Suspect]
     Indication: NON-SMALL CELL LUNG CANCER
     Dosage: 150 MG (QD), ORAL
     Route: 048
     Dates: start: 20041228, end: 20050127
  2. OMEPRAZOLE [Concomitant]
  3. VICODIN [Concomitant]
  4. ZOLPIDEM TARTRATE [Concomitant]

REACTIONS (6)
  - APHASIA [None]
  - ASTHENIA [None]
  - CENTRAL NERVOUS SYSTEM INFECTION [None]
  - DYSARTHRIA [None]
  - HYPERTENSIVE CRISIS [None]
  - RENAL CYST [None]
